FAERS Safety Report 13839646 (Version 1)
Quarter: 2017Q3

REPORT INFORMATION
  Report Type: Spontaneous
  Country: US (occurrence: US)
  Receive Date: 20170807
  Receipt Date: 20170807
  Transmission Date: 20171127
  Serious: Yes (Death, Hospitalization)
  Sender: FDA-Public Use
  Company Number: US-JNJFOC-20170802199

PATIENT
  Age: 79 Year
  Sex: Male
  Weight: 103.69 kg

DRUGS (5)
  1. ACTOS [Suspect]
     Active Substance: PIOGLITAZONE HYDROCHLORIDE
     Indication: DIABETES MELLITUS
     Route: 048
  2. GLUCOPHAGE [Suspect]
     Active Substance: METFORMIN HYDROCHLORIDE
     Indication: PRODUCT USED FOR UNKNOWN INDICATION
     Route: 048
  3. INVOKANA [Suspect]
     Active Substance: CANAGLIFLOZIN
     Indication: DIABETES MELLITUS
     Route: 048
     Dates: start: 20140926, end: 20150529
  4. ONGLYZA [Suspect]
     Active Substance: SAXAGLIPTIN HYDROCHLORIDE
     Indication: DIABETES MELLITUS
     Route: 048
  5. AMARYL [Suspect]
     Active Substance: GLIMEPIRIDE
     Indication: PRODUCT USED FOR UNKNOWN INDICATION
     Dosage: WITH BREAKFAST
     Route: 048

REACTIONS (12)
  - Myocardial infarction [Unknown]
  - Acute myocardial infarction [None]
  - Acute kidney injury [None]
  - Cardiac failure congestive [None]
  - Death [Fatal]
  - Mitral valve stenosis [None]
  - Multiple organ dysfunction syndrome [Unknown]
  - Aortic stenosis [None]
  - Chronic kidney disease [Unknown]
  - Cardiogenic shock [Unknown]
  - Diabetic nephropathy [Unknown]
  - Coronary artery occlusion [None]

NARRATIVE: CASE EVENT DATE: 20150713
